FAERS Safety Report 12172577 (Version 4)
Quarter: 2021Q3

REPORT INFORMATION
  Report Type: Spontaneous
  Country: FR (occurrence: FR)
  Receive Date: 20160311
  Receipt Date: 20210916
  Transmission Date: 20211014
  Serious: Yes (Hospitalization, Disabling, Congenital Anomaly, Other)
  Sender: FDA-Public Use
  Company Number: FR-ABBVIE-16P-056-1578877-00

PATIENT
  Sex: Female

DRUGS (4)
  1. SPECIAFOLDINE [Suspect]
     Active Substance: FOLIC ACID
     Indication: PRODUCT USED FOR UNKNOWN INDICATION
     Route: 065
  2. RIVOTRIL [Suspect]
     Active Substance: CLONAZEPAM
     Indication: MATERNAL EXPOSURE TIMING UNSPECIFIED
     Route: 064
  3. DEPAKINE CHRONO [Suspect]
     Active Substance: VALPROATE SODIUM
     Indication: MATERNAL EXPOSURE TIMING UNSPECIFIED
     Route: 064
  4. LAMICTAL [Suspect]
     Active Substance: LAMOTRIGINE
     Indication: MATERNAL EXPOSURE TIMING UNSPECIFIED
     Route: 064

REACTIONS (29)
  - Foetal anticonvulsant syndrome [Unknown]
  - Nerve conduction studies abnormal [Unknown]
  - Lower respiratory tract congestion [Unknown]
  - Otitis media [Unknown]
  - Drug withdrawal syndrome [Unknown]
  - Cognitive linguistic deficit [Unknown]
  - Urogenital disorder [Unknown]
  - Conjunctivitis [Unknown]
  - Congenital oesophageal anomaly [Unknown]
  - Hirsutism [Recovering/Resolving]
  - Constipation [Unknown]
  - Learning disorder [Unknown]
  - Weaning failure [Recovered/Resolved]
  - Enlarged clitoris [Unknown]
  - Psychomotor retardation [Unknown]
  - Developmental delay [Unknown]
  - Congenital musculoskeletal anomaly [Unknown]
  - Precocious puberty [Recovering/Resolving]
  - Behaviour disorder [Unknown]
  - Epiphyses premature fusion [Unknown]
  - Impaired reasoning [Unknown]
  - Nasopharyngitis [Unknown]
  - Rhinitis [Unknown]
  - Foetal exposure during pregnancy [Unknown]
  - Cognitive disorder [Unknown]
  - Congenital gastric anomaly [Unknown]
  - Speech disorder developmental [Unknown]
  - Toxicity to various agents [Unknown]
  - Accidental exposure to product by child [Unknown]

NARRATIVE: CASE EVENT DATE: 200601
